FAERS Safety Report 21563919 (Version 1)
Quarter: 2022Q4

REPORT INFORMATION
  Report Type: Spontaneous
  Country: CH (occurrence: CH)
  Receive Date: 20221108
  Receipt Date: 20221108
  Transmission Date: 20230112
  Serious: Yes (Hospitalization, Other)
  Sender: FDA-Public Use
  Company Number: None

PATIENT
  Age: 54 Year
  Sex: Female
  Weight: 88 kg

DRUGS (11)
  1. SAXENDA [Suspect]
     Active Substance: LIRAGLUTIDE
     Indication: Obesity
     Dosage: 3 MG, QD
     Route: 058
     Dates: start: 20210608, end: 20211205
  2. CO LISINOPRIL SPIRIG HC [Concomitant]
     Indication: Product used for unknown indication
     Dosage: 20/12.5 MG 1-0-0-0
     Route: 048
  3. AMLODIPIN SPIRIG HC [Concomitant]
     Indication: Product used for unknown indication
     Dosage: 5 MG 1-0-0-0
     Route: 048
  4. CALCIUM\CHOLECALCIFEROL [Concomitant]
     Active Substance: CALCIUM\CHOLECALCIFEROL
     Indication: Product used for unknown indication
     Dosage: 1000 MG / 800 IU 1-0-0-0
     Route: 048
  5. HERBALS [Concomitant]
     Active Substance: HERBALS
     Indication: Product used for unknown indication
     Dosage: 10 ML, QD
     Route: 048
  6. ESOMEPRAZOL SPIRIG [Concomitant]
     Indication: Product used for unknown indication
     Dosage: 40 MG, QD(40 MG 1-0-0-0)
     Route: 048
  7. FLUOXETINE HYDROCHLORIDE [Concomitant]
     Active Substance: FLUOXETINE HYDROCHLORIDE
     Indication: Product used for unknown indication
     Dosage: 20 MG, QD( 20 MG 1-0-0-0)
     Route: 048
  8. ELTROXIN LF [Concomitant]
     Indication: Product used for unknown indication
     Dosage: 0.05 MG, QD
     Route: 048
  9. FOLIC ACID [Concomitant]
     Active Substance: FOLIC ACID
     Indication: Product used for unknown indication
     Dosage: 5 MG, QD(5 MG 1-0-0-0)
     Route: 048
  10. MORPHINE HYDROCHLORIDE [Concomitant]
     Active Substance: MORPHINE HYDROCHLORIDE
     Indication: Product used for unknown indication
     Dosage: 2% 20 MG/ML 10 DROPS/DAY
     Route: 048
  11. BUPRENORPHINE [Concomitant]
     Active Substance: BUPRENORPHINE
     Indication: Product used for unknown indication
     Dosage: 70 MCG/H 2X/WEEK TRANSDERMAL
     Route: 062

REACTIONS (1)
  - Pancreatitis necrotising [Recovering/Resolving]

NARRATIVE: CASE EVENT DATE: 20211201
